FAERS Safety Report 6834928-X (Version None)
Quarter: 2010Q3

REPORT INFORMATION
  Report Type: 
  Country: None (occurrence: None)
  Receive Date: 20100712
  Receipt Date: 20070422
  Transmission Date: 20110219
  Serious: No
  Sender: FDA-Public Use
  Company Number: US-PFIZER INC-2007032876

PATIENT
  Sex: Female
  Weight: 56.7 kg

DRUGS (7)
  1. CHANTIX [Suspect]
     Indication: SMOKING CESSATION THERAPY
     Dates: start: 20070313
  2. XANAX [Concomitant]
  3. AMITRIPTYLINE HYDROCHLORIDE [Concomitant]
  4. TRAZODONE HYDROCHLORIDE [Concomitant]
  5. MONTELUKAST SODIUM [Concomitant]
  6. ALBUTEROL [Concomitant]
  7. ATROVENT [Concomitant]

REACTIONS (10)
  - ABDOMINAL DISTENSION [None]
  - ABDOMINAL PAIN [None]
  - CONSTIPATION [None]
  - DECREASED APPETITE [None]
  - DISCOMFORT [None]
  - DYSKINESIA [None]
  - MALAISE [None]
  - NAUSEA [None]
  - PAIN [None]
  - VOMITING [None]
